FAERS Safety Report 19151790 (Version 2)
Quarter: 2022Q3

REPORT INFORMATION
  Report Type: Spontaneous
  Country: US (occurrence: US)
  Receive Date: 20210419
  Receipt Date: 20220810
  Transmission Date: 20221027
  Serious: Yes (Hospitalization)
  Sender: FDA-Public Use
  Company Number: US-THERATECHNOLOGIES INC.-2021-THE-TES-000109

PATIENT

DRUGS (1)
  1. EGRIFTA SV [Suspect]
     Active Substance: TESAMORELIN ACETATE
     Indication: Product used for unknown indication
     Dosage: UNK
     Route: 058

REACTIONS (1)
  - Hospitalisation [Unknown]
